FAERS Safety Report 10257756 (Version 2)
Quarter: 2014Q3

REPORT INFORMATION
  Report Type: Report from Study
  Country: DE (occurrence: DE)
  Receive Date: 20140625
  Receipt Date: 20140715
  Transmission Date: 20150326
  Serious: Yes (Death, Other)
  Sender: FDA-Public Use
  Company Number: DE-BEH-2014043336

PATIENT
  Age: 56 Year
  Sex: Female
  Weight: 70 kg

DRUGS (6)
  1. PRIVIGEN [Suspect]
     Active Substance: HUMAN IMMUNOGLOBULIN G
     Indication: SECONDARY IMMUNODEFICIENCY
     Dates: start: 20130409, end: 20130409
  2. PRIVIGEN [Suspect]
     Active Substance: HUMAN IMMUNOGLOBULIN G
     Indication: CHRONIC LYMPHOCYTIC LEUKAEMIA
     Dates: start: 20130507, end: 20130507
  3. PRIVIGEN [Suspect]
     Active Substance: HUMAN IMMUNOGLOBULIN G
     Dates: start: 20130829, end: 20130829
  4. PRIVIGEN [Suspect]
     Active Substance: HUMAN IMMUNOGLOBULIN G
     Dosage: INFUSION RATE 67 ML/H
     Dates: start: 20130926, end: 20130926
  5. PRIVIGEN [Suspect]
     Active Substance: HUMAN IMMUNOGLOBULIN G
     Indication: INFECTION
     Dates: start: 20130701, end: 20130701
  6. PRIVIGEN [Suspect]
     Active Substance: HUMAN IMMUNOGLOBULIN G
     Dates: start: 20130729, end: 20130729

REACTIONS (3)
  - Keratoacanthoma [Recovered/Resolved]
  - Pneumonia [Recovered/Resolved]
  - Pneumonia [Fatal]

NARRATIVE: CASE EVENT DATE: 20130728
